FAERS Safety Report 13407455 (Version 2)
Quarter: 2019Q1

REPORT INFORMATION
  Report Type: Spontaneous
  Country: AU (occurrence: AU)
  Receive Date: 20170405
  Receipt Date: 20190212
  Transmission Date: 20190417
  Serious: Yes (Other)
  Sender: FDA-Public Use
  Company Number: AU-ELI_LILLY_AND_COMPANY-AU201703012498

PATIENT
  Sex: Male
  Weight: 80 kg

DRUGS (7)
  1. CARVEDILOL. [Concomitant]
     Active Substance: CARVEDILOL
     Indication: PRODUCT USED FOR UNKNOWN INDICATION
     Dosage: 2.5 MG, UNKNOWN
     Route: 065
  2. ZUCLOPENTHIXOL DECANOATE [Concomitant]
     Active Substance: ZUCLOPENTHIXOL DECANOATE
     Indication: SUBSTANCE USE
  3. OLANZAPINE. [Suspect]
     Active Substance: OLANZAPINE
     Indication: SCHIZOPHRENIA
     Dosage: 30 MG, QD
     Route: 065
     Dates: start: 20161024
  4. OLANZAPINE. [Suspect]
     Active Substance: OLANZAPINE
     Indication: SUBSTANCE USE
  5. OLANZAPINE. [Suspect]
     Active Substance: OLANZAPINE
     Indication: ANTISOCIAL BEHAVIOUR
  6. ZUCLOPENTHIXOL DECANOATE [Concomitant]
     Active Substance: ZUCLOPENTHIXOL DECANOATE
     Indication: ANTISOCIAL BEHAVIOUR
  7. ZUCLOPENTHIXOL DECANOATE [Concomitant]
     Active Substance: ZUCLOPENTHIXOL DECANOATE
     Indication: SCHIZOPHRENIA
     Dosage: 600 MG, EVERY 10 DAYS
     Route: 030
     Dates: start: 201610

REACTIONS (10)
  - Blood cholesterol increased [Unknown]
  - Hypophagia [Unknown]
  - Drug intolerance [Unknown]
  - Gynaecomastia [Unknown]
  - Ejection fraction decreased [Unknown]
  - Therapeutic response decreased [Unknown]
  - Hypotension [Unknown]
  - Left ventricular dysfunction [Unknown]
  - Paranoia [Unknown]
  - Overdose [Unknown]

NARRATIVE: CASE EVENT DATE: 201610
